FAERS Safety Report 22975517 (Version 3)
Quarter: 2024Q2

REPORT INFORMATION
  Report Type: Spontaneous
  Country: CH (occurrence: CH)
  Receive Date: 20230925
  Receipt Date: 20240618
  Transmission Date: 20240716
  Serious: Yes (Hospitalization)
  Sender: FDA-Public Use
  Company Number: CH-ABBVIE-5333223

PATIENT
  Age: 71 Year
  Sex: Female

DRUGS (2)
  1. TIMOLOL [Suspect]
     Active Substance: TIMOLOL
     Indication: Ocular hypertension
     Dosage: AQUEOUS SOLUTION OF 0.5% TIMOLOL DAILY (1 DROP IN THE MORNING)
     Route: 050
  2. BRINZOLAMIDE [Suspect]
     Active Substance: BRINZOLAMIDE
     Indication: Ocular hypertension
     Dosage: DOSAGE: 10 MG/ML TWO DROPS IN THE MORNING
     Route: 047

REACTIONS (6)
  - Syncope [Unknown]
  - Hypotension [Recovered/Resolved]
  - Pruritus allergic [Unknown]
  - Bradycardia [Recovered/Resolved]
  - Erythema [Unknown]
  - Drug-genetic interaction [Unknown]
